FAERS Safety Report 9860603 (Version 2)
Quarter: 2014Q1

REPORT INFORMATION
  Report Type: Spontaneous
  Country: SE (occurrence: SE)
  Receive Date: 20140202
  Receipt Date: 20140202
  Transmission Date: 20141002
  Serious: No
  Sender: FDA-Public Use
  Company Number: SE-ALLERGAN-1216599US

PATIENT
  Age: 45 Year
  Sex: Female

DRUGS (1)
  1. VISTABEL [Suspect]
     Indication: PRODUCT USED FOR UNKNOWN INDICATION
     Dosage: UNK
     Dates: start: 20120402, end: 20120402

REACTIONS (1)
  - Swelling face [Not Recovered/Not Resolved]
